FAERS Safety Report 18014158 (Version 1)
Quarter: 2020Q3

REPORT INFORMATION
  Report Type: Spontaneous
  Country: RU (occurrence: RU)
  Receive Date: 20200713
  Receipt Date: 20200713
  Transmission Date: 20201103
  Serious: Yes (Other)
  Sender: FDA-Public Use
  Company Number: NVSC2020RU194361

PATIENT
  Age: 5 Year
  Sex: Female
  Weight: 14.1 kg

DRUGS (1)
  1. METHOTREXAT ? EBEWE [Suspect]
     Active Substance: METHOTREXATE SODIUM
     Indication: RHEUMATOID ARTHRITIS
     Dosage: 7.5 MG, QW
     Route: 058
     Dates: start: 20200618, end: 20200618

REACTIONS (7)
  - Apathy [Recovering/Resolving]
  - Vomiting [Recovering/Resolving]
  - Decreased activity [Recovering/Resolving]
  - Asthenia [Recovering/Resolving]
  - Decreased appetite [Recovering/Resolving]
  - Decreased interest [Recovering/Resolving]
  - Lethargy [Recovering/Resolving]

NARRATIVE: CASE EVENT DATE: 20200618
